FAERS Safety Report 5569572-8 (Version None)
Quarter: 2007Q4

REPORT INFORMATION
  Report Type: 
  Country: None (occurrence: None)
  Receive Date: 20071220
  Receipt Date: 20071211
  Transmission Date: 20080405
  Serious: Yes (Other)
  Sender: FDA-Public Use
  Company Number: US-ELI_LILLY_AND_COMPANY-US200712002351

PATIENT
  Sex: Female

DRUGS (3)
  1. CYMBALTA [Suspect]
     Indication: DEPRESSION
     Dosage: UNK, UNK
     Dates: start: 20071001, end: 20070101
  2. ZOLOFT [Concomitant]
  3. INSULIN [Concomitant]

REACTIONS (3)
  - DYSPNOEA [None]
  - EYE SWELLING [None]
  - SWELLING FACE [None]
